FAERS Safety Report 4509745-6 (Version None)
Quarter: 2004Q4

REPORT INFORMATION
  Report Type: 
  Country: None (occurrence: None)
  Receive Date: 20041124
  Receipt Date: 20041118
  Transmission Date: 20050328
  Serious: Yes (Other)
  Sender: FDA-Public Use
  Company Number: PHBS2004CA15688

PATIENT
  Age: 55 Year
  Sex: Male

DRUGS (12)
  1. CLOZARIL [Suspect]
     Indication: MEDICATION ERROR
     Dosage: 200 MG, ONCE/SINGLE
     Route: 048
     Dates: start: 20041117, end: 20041117
  2. ZYPREXA [Concomitant]
     Dosage: 27.5 MG/D
     Route: 048
     Dates: end: 20041117
  3. CARBOLITH [Concomitant]
     Dosage: 900 MG/D
     Route: 048
  4. LISTENTIL [Concomitant]
     Dosage: 50 MG, QHS
     Route: 048
  5. TEMAZEPAM [Concomitant]
     Dosage: 30 MG, PRN
     Route: 048
  6. CELEXA [Concomitant]
     Dosage: 0.25 TABLET IN THE MORNING
     Route: 048
  7. VALPROIC ACID [Concomitant]
     Dosage: 3 TABLETS/D
     Route: 048
  8. LIPIDIL [Concomitant]
     Dosage: 160 MG/D
     Route: 065
  9. PANTOPRAZOLE SODIUM [Concomitant]
     Dosage: 40 MG, QD
     Route: 048
  10. COLACE [Concomitant]
     Dosage: 100 MG/D
     Route: 048
  11. ATIVAN [Concomitant]
     Dosage: UNK, PRN
     Route: 065
  12. CHLORPROMAZINE [Concomitant]
     Dosage: UNK, PRN
     Route: 065

REACTIONS (2)
  - ACCIDENTAL EXPOSURE [None]
  - VOMITING [None]
